FAERS Safety Report 8835788 (Version 1)
Quarter: 2012Q4

REPORT INFORMATION
  Report Type: 
  Country: US (occurrence: US)
  Receive Date: 20121011
  Receipt Date: 20121011
  Transmission Date: 20130627
  Serious: No
  Sender: FDA-Public Use
  Company Number: US-009507513-1210USA002831

PATIENT
  Sex: Male

DRUGS (4)
  1. PEG-INTRON [Suspect]
     Indication: HEPATITIS C
     Dosage: REDIPEN
     Dates: start: 20120906
  2. PEG-INTRON [Suspect]
     Dosage: REDIPEN
     Dates: start: 20090407, end: 20091007
  3. REBETOL [Suspect]
     Indication: HEPATITIS C
     Dosage: UNK
     Dates: start: 20120906
  4. REBETOL [Suspect]
     Dosage: UNK
     Dates: start: 20090407, end: 20091007

REACTIONS (5)
  - Abasia [Unknown]
  - Constipation [Unknown]
  - Decreased appetite [Unknown]
  - Drug ineffective [Unknown]
  - Fatigue [Unknown]
